FAERS Safety Report 8679154 (Version 2)
Quarter: 2013Q2

REPORT INFORMATION
  Report Type: Spontaneous
  Country: US (occurrence: US)
  Receive Date: 20120724
  Receipt Date: 20130507
  Transmission Date: 20140414
  Serious: No
  Sender: FDA-Public Use
  Company Number: US-PFIZER INC-2012176188

PATIENT
  Sex: Female
  Weight: 97.51 kg

DRUGS (5)
  1. LYRICA [Suspect]
     Dosage: UNK
  2. CELEBREX [Suspect]
     Dosage: UNK
  3. ZOLOFT [Suspect]
     Dosage: UNK
  4. LYRICA [Suspect]
     Dosage: 100 MG, 3X/DAY
     Route: 048
  5. LYRICA [Suspect]
     Dosage: 100 MG, 3X/DAY
     Route: 048
     Dates: start: 201303, end: 2013

REACTIONS (3)
  - Vision blurred [Unknown]
  - Muscle twitching [Unknown]
  - Neuropathy peripheral [Unknown]
